FAERS Safety Report 22304455 (Version 1)
Quarter: 2023Q2

REPORT INFORMATION
  Report Type: Spontaneous
  Country: US (occurrence: None)
  Receive Date: 20230509
  Receipt Date: 20230509
  Transmission Date: 20230721
  Serious: Yes (unspecified)
  Sender: FDA-Public Use
  Company Number: None

PATIENT
  Age: 69 Year
  Sex: Female
  Weight: 78.75 kg

DRUGS (18)
  1. GRALISE [Suspect]
     Active Substance: GABAPENTIN
     Indication: Neuropathy peripheral
     Dosage: FREQUENCY : TWICE A DAY;?
     Route: 048
  2. Metoprolol atac [Concomitant]
  3. SYNTHROID [Concomitant]
     Active Substance: LEVOTHYROXINE SODIUM
  4. PRAVASTATIN [Concomitant]
     Active Substance: PRAVASTATIN
  5. BACLOFEN [Concomitant]
     Active Substance: BACLOFEN
  6. PERCOCET [Concomitant]
     Active Substance: ACETAMINOPHEN\OXYCODONE HYDROCHLORIDE
  7. EVOXAC [Concomitant]
     Active Substance: CEVIMELINE HYDROCHLORIDE
  8. ROBAXIN [Concomitant]
     Active Substance: METHOCARBAMOL
  9. AMBIEN [Concomitant]
     Active Substance: ZOLPIDEM TARTRATE
  10. COENZYME Q10 [Concomitant]
     Active Substance: DIETARY SUPPLEMENT\UBIDECARENONE
  11. DIETARY SUPPLEMENT\UBIDECARENONE [Concomitant]
     Active Substance: DIETARY SUPPLEMENT\UBIDECARENONE
  12. MAGNESIUM [Concomitant]
     Active Substance: MAGNESIUM
  13. mega-B vitamin [Concomitant]
  14. COLLAGEN [Concomitant]
     Active Substance: COLLAGEN
  15. MELATONIN [Concomitant]
     Active Substance: MELATONIN
  16. FLAXSEED [Concomitant]
     Active Substance: FLAX SEED
  17. FISH OIL [Concomitant]
  18. OLIVE OIL [Concomitant]
     Active Substance: OLIVE OIL

REACTIONS (4)
  - Blood pressure increased [None]
  - Therapy change [None]
  - Abdominal distension [None]
  - Balance disorder [None]

NARRATIVE: CASE EVENT DATE: 20230204
